FAERS Safety Report 8889360 (Version 1)
Quarter: 2012Q4

REPORT INFORMATION
  Report Type: Spontaneous
  Country: US (occurrence: None)
  Receive Date: 20121102
  Receipt Date: 20121102
  Transmission Date: 20130627
  Serious: Yes (Other)
  Sender: FDA-Public Use
  Company Number: None

PATIENT
  Age: 58 Year
  Sex: Male
  Weight: 82.56 kg

DRUGS (1)
  1. ZICAM [Suspect]
     Dosage: One swab 4 x per day Until cold is gone
     Route: 045
     Dates: start: 20100105, end: 20100110

REACTIONS (3)
  - Anosmia [None]
  - Ageusia [None]
  - Product quality issue [None]
